FAERS Safety Report 7401852-3 (Version None)
Quarter: 2011Q2

REPORT INFORMATION
  Report Type: 
  Country: None (occurrence: None)
  Receive Date: 20110408
  Receipt Date: 20091109
  Transmission Date: 20111010
  Serious: Yes (Hospitalization, Other)
  Sender: FDA-Public Use
  Company Number: US-BAYER-200938734NA

PATIENT
  Sex: Female
  Weight: 63 kg

DRUGS (17)
  1. HEPARIN [Concomitant]
     Dosage: 25000UNITS X2
     Route: 042
     Dates: start: 20020409
  2. TRASYLOL [Suspect]
     Indication: TRANSPLANT
  3. INSULIN [Concomitant]
     Dosage: 3 UNITS-DRIP RATE, 25 UNITS IN BOLUSES
     Route: 042
     Dates: start: 20020409, end: 20020409
  4. HEPARIN [Concomitant]
     Dosage: 35000UNITS TOTAL
     Route: 042
     Dates: start: 20020409, end: 20020409
  5. MIDAZOLAM [Concomitant]
     Dosage: 7.5 MG, UNK
     Route: 042
     Dates: start: 20020409
  6. PLASMA [Concomitant]
     Dosage: 587 ML, UNK
     Dates: start: 20020409
  7. ENALAPRIL MALEATE [Concomitant]
     Dosage: 10 MG, UNK
     Route: 048
     Dates: end: 20020404
  8. VANCOMYCIN [Concomitant]
     Dosage: 1000 MG, UNK
     Route: 042
     Dates: start: 20020409
  9. BLOOD AND RELATED PRODUCTS [Concomitant]
     Dosage: 500 ML, UNK
     Dates: start: 20020409
  10. PLATELETS [Concomitant]
     Dosage: 329 ML, UNK
     Dates: start: 20020409
  11. VIOXX [Concomitant]
     Dosage: 12.5 MG, UNK
     Route: 048
     Dates: end: 20020329
  12. ZANTAC [Concomitant]
     Route: 048
  13. MILRINONE [Concomitant]
     Dosage: 27.57 ML, UNK
     Dates: start: 20020409
  14. TRASYLOL [Suspect]
     Indication: AORTIC VALVE REPLACEMENT
     Dosage: TEST DOSE 1 ML, LOADING DOSE 400 ML, 50 ML/HR
     Route: 042
     Dates: start: 20020409, end: 20020409
  15. TRASYLOL [Suspect]
     Indication: PULMONARY VALVE REPLACEMENT
     Dosage: UNK
  16. MILRINONE [Concomitant]
     Dosage: 3000 MICROGRAMSX2
     Route: 042
     Dates: start: 20020409, end: 20020409
  17. MANNITOL [Concomitant]
     Dosage: 50 G, UNK
     Route: 042
     Dates: start: 20020409, end: 20020409

REACTIONS (12)
  - RENAL INJURY [None]
  - INJURY [None]
  - MYOCARDIAL INFARCTION [None]
  - RENAL IMPAIRMENT [None]
  - STRESS [None]
  - RENAL FAILURE [None]
  - FEAR [None]
  - PAIN [None]
  - EMOTIONAL DISTRESS [None]
  - UNEVALUABLE EVENT [None]
  - ANXIETY [None]
  - ANHEDONIA [None]
